FAERS Safety Report 24148709 (Version 1)
Quarter: 2024Q3

REPORT INFORMATION
  Report Type: Spontaneous
  Country: KG (occurrence: KG)
  Receive Date: 20240729
  Receipt Date: 20240729
  Transmission Date: 20241017
  Serious: Yes (Life-Threatening, Hospitalization, Other)
  Sender: PHARMACEUTICAL ASSOC
  Company Number: KG-PAIPHARMA-2024-KG-000004

PATIENT
  Sex: Female

DRUGS (1)
  1. CHLORHEXIDINE GLUCONATE [Suspect]
     Active Substance: CHLORHEXIDINE GLUCONATE
     Indication: Product used for unknown indication
     Route: 042
     Dates: start: 20220323

REACTIONS (6)
  - Toxicity to various agents [Recovered/Resolved]
  - Incorrect route of product administration [Recovered/Resolved]
  - Pulmonary oedema [Recovered/Resolved]
  - Respiratory failure [Recovered/Resolved]
  - Hysterectomy [Unknown]
  - Premature delivery [Unknown]

NARRATIVE: CASE EVENT DATE: 20220323
